FAERS Safety Report 12555863 (Version 1)
Quarter: 2016Q3

REPORT INFORMATION
  Report Type: Spontaneous
  Country: US (occurrence: None)
  Receive Date: 20160713
  Receipt Date: 20160713
  Transmission Date: 20161109
  Serious: Yes (Hospitalization, Disabling, Other)
  Sender: FDA-Public Use
  Company Number: None

PATIENT
  Age: 36 Year
  Sex: Male
  Weight: 70 kg

DRUGS (5)
  1. VITAMIN D [Concomitant]
     Active Substance: CHOLECALCIFEROL
  2. ESSENTIAL OILS AND JUICES [Concomitant]
  3. MAGNESIUM [Concomitant]
     Active Substance: MAGNESIUM
  4. SELENIUM [Concomitant]
     Active Substance: SELENIUM
  5. CIPROFLOXACIN. [Suspect]
     Active Substance: CIPROFLOXACIN
     Indication: GASTROINTESTINAL INFECTION
     Route: 048
     Dates: start: 20160513, end: 20160528

REACTIONS (11)
  - Muscle spasms [None]
  - Dizziness [None]
  - Movement disorder [None]
  - Groin pain [None]
  - Paraesthesia [None]
  - Hypoaesthesia [None]
  - Arthropathy [None]
  - Osteonecrosis [None]
  - Musculoskeletal stiffness [None]
  - Facial nerve disorder [None]
  - Tendon rupture [None]

NARRATIVE: CASE EVENT DATE: 20160518
